FAERS Safety Report 7320067-0 (Version None)
Quarter: 2011Q1

REPORT INFORMATION
  Report Type: 
  Country: None (occurrence: None)
  Receive Date: 20110214
  Receipt Date: 20110202
  Transmission Date: 20110831
  Serious: Yes (Other)
  Sender: FDA-Public Use
  Company Number: 2011SP005042

PATIENT
  Age: 32 Year
  Sex: Female

DRUGS (1)
  1. IMPLANON [Suspect]
     Indication: CONTRACEPTION
     Dates: start: 20090323

REACTIONS (9)
  - NAUSEA [None]
  - MOOD SWINGS [None]
  - DEPRESSION [None]
  - ACNE [None]
  - NERVOUSNESS [None]
  - NASOPHARYNGITIS [None]
  - BREAST TENDERNESS [None]
  - SUICIDAL IDEATION [None]
  - WEIGHT DECREASED [None]
